FAERS Safety Report 7417025-4 (Version None)
Quarter: 2011Q2

REPORT INFORMATION
  Report Type: 
  Country: None (occurrence: None)
  Receive Date: 20110415
  Receipt Date: 20110401
  Transmission Date: 20111010
  Serious: Yes (Hospitalization, Other)
  Sender: FDA-Public Use
  Company Number: DE-JNJFOC-20110302823

PATIENT
  Sex: Female
  Weight: 95 kg

DRUGS (14)
  1. ASPIRIN [Concomitant]
     Indication: HYPERTENSION
  2. TEMAZEPAM [Concomitant]
     Indication: MUSCLE SPASMS
  3. HYDROCHLOROTHIAZIDE/RAMIPRIL [Concomitant]
     Indication: HYPERTENSION
  4. JUNIK [Concomitant]
     Indication: ASTHMA
  5. SPIRIVA [Concomitant]
     Indication: OBSTRUCTIVE AIRWAYS DISORDER
  6. ROPINIROLE [Concomitant]
     Indication: PARKINSONISM
  7. TRAMADOL [Concomitant]
  8. ASPIRIN [Concomitant]
     Indication: CORONARY ARTERY DISEASE
  9. MADOPAR [Concomitant]
     Indication: PARKINSON'S DISEASE
  10. FUROSEMID [Concomitant]
     Indication: RENAL FAILURE CHRONIC
  11. FORADIL [Concomitant]
     Indication: ASTHMA
  12. PALEXIA RETARD [Suspect]
     Indication: PAIN
     Route: 048
  13. ATARAX [Concomitant]
     Indication: PRURITUS
  14. INSULIN [Concomitant]
     Indication: TYPE 2 DIABETES MELLITUS

REACTIONS (1)
  - MECHANICAL ILEUS [None]
